FAERS Safety Report 10070616 (Version 1)
Quarter: 2014Q2

REPORT INFORMATION
  Report Type: Spontaneous
  Country: US (occurrence: US)
  Receive Date: 20140410
  Receipt Date: 20140410
  Transmission Date: 20141212
  Serious: Yes (Hospitalization)
  Sender: FDA-Public Use
  Company Number: US-BAYER-2014-050732

PATIENT
  Age: 51 Year
  Sex: Female

DRUGS (2)
  1. GADAVIST [Suspect]
     Indication: NUCLEAR MAGNETIC RESONANCE IMAGING
     Dosage: 8.6 ML, ONCE
     Route: 042
     Dates: start: 20140401, end: 20140401
  2. BENADRYL [Concomitant]

REACTIONS (1)
  - Nausea [None]
